FAERS Safety Report 10519778 (Version 1)
Quarter: 2014Q4

REPORT INFORMATION
  Report Type: Report from Study
  Country: US (occurrence: US)
  Receive Date: 20141015
  Receipt Date: 20141015
  Transmission Date: 20150528
  Serious: No
  Sender: FDA-Public Use
  Company Number: US-ALEXION-A200800807

PATIENT

DRUGS (1)
  1. SOLIRIS [Suspect]
     Active Substance: ECULIZUMAB
     Indication: PAROXYSMAL NOCTURNAL HAEMOGLOBINURIA
     Dosage: UNK
     Route: 042

REACTIONS (17)
  - Dizziness [Unknown]
  - Aphasia [Unknown]
  - Pain [Unknown]
  - Laboratory test abnormal [Unknown]
  - Haemoglobinuria [Unknown]
  - Muscular weakness [Unknown]
  - Insomnia [Unknown]
  - Ear disorder [Unknown]
  - Headache [Unknown]
  - Stress [Unknown]
  - Fatigue [Unknown]
  - Dysphagia [Unknown]
  - Chromaturia [Unknown]
  - Blood urine present [Unknown]
  - Abdominal pain [Unknown]
  - Urinary tract infection [Unknown]
  - Neck mass [Unknown]
